FAERS Safety Report 7383831-8 (Version None)
Quarter: 2011Q1

REPORT INFORMATION
  Report Type: 
  Country: None (occurrence: None)
  Receive Date: 20110330
  Receipt Date: 20110323
  Transmission Date: 20110831
  Serious: Yes (Other)
  Sender: FDA-Public Use
  Company Number: US-GILEAD-2011-0036938

PATIENT
  Sex: Female
  Weight: 150.73 kg

DRUGS (12)
  1. PROAIR HFA [Concomitant]
  2. SIMVASTATIN [Concomitant]
  3. FLOVENT [Concomitant]
  4. LOSARTAN POTASSIUM-HCTZ [Concomitant]
  5. PRILOSEC [Concomitant]
  6. RELION N [Concomitant]
  7. CITALOPRAM HYDROBROMIDE [Concomitant]
  8. FUROSEMIDE [Concomitant]
  9. POTASSIUM CHLORIDE [Concomitant]
  10. METOLAZONE [Concomitant]
  11. LETAIRIS [Suspect]
     Indication: PULMONARY HYPERTENSION
     Route: 048
     Dates: start: 20100805, end: 20110223
  12. RELION R [Concomitant]

REACTIONS (1)
  - CARDIAC FAILURE CONGESTIVE [None]
